FAERS Safety Report 5582836-7 (Version None)
Quarter: 2008Q1

REPORT INFORMATION
  Report Type: 
  Country: None (occurrence: None)
  Receive Date: 20080107
  Receipt Date: 20080103
  Transmission Date: 20080703
  Serious: Yes (Death, Life-Threatening, Hospitalization, Other)
  Sender: FDA-Public Use
  Company Number: DE-JNJFOC-20070200375

PATIENT
  Sex: Male

DRUGS (11)
  1. REMINYL [Suspect]
     Indication: DEMENTIA
     Route: 048
  2. RAMIPRIL [Concomitant]
     Route: 048
  3. SPIRONOLACTONE [Concomitant]
     Route: 048
  4. METOPROLOL TARTRATE [Concomitant]
     Route: 048
  5. FUROSEMIDE [Concomitant]
     Route: 048
  6. SIMVASTATIN [Concomitant]
     Route: 048
  7. XIPAMID [Concomitant]
     Route: 048
  8. ALLOPURINOL [Concomitant]
     Route: 048
  9. TREVILOR [Concomitant]
     Route: 048
  10. NOVODIGAL [Concomitant]
     Route: 048
  11. MARCUMAR [Concomitant]
     Route: 048

REACTIONS (2)
  - CARDIAC FAILURE [None]
  - DEATH [None]
